FAERS Safety Report 18321117 (Version 1)
Quarter: 2020Q3

REPORT INFORMATION
  Report Type: Spontaneous
  Country: CN (occurrence: CN)
  Receive Date: 20200928
  Receipt Date: 20200928
  Transmission Date: 20201103
  Serious: Yes (Other)
  Sender: FDA-Public Use
  Company Number: CN-PFIZER INC-2020371353

PATIENT
  Age: 46 Year
  Sex: Female
  Weight: 60 kg

DRUGS (2)
  1. ANZATAX (PACLITAXEL) [Suspect]
     Active Substance: PACLITAXEL
     Indication: CERVIX CARCINOMA
     Dosage: 240 MG, 1X/DAY
     Route: 041
     Dates: start: 20200811, end: 20200811
  2. NUO XIN [Suspect]
     Active Substance: CISPLATIN
     Indication: CERVIX CARCINOMA
     Dosage: 35 MG, 1X/DAY
     Route: 041
     Dates: start: 20200811, end: 20200811

REACTIONS (3)
  - Product use in unapproved indication [Unknown]
  - Hepatic function abnormal [Recovering/Resolving]
  - Off label use [Unknown]

NARRATIVE: CASE EVENT DATE: 20200811
